FAERS Safety Report 7306214-5 (Version None)
Quarter: 2011Q1

REPORT INFORMATION
  Report Type: 
  Country: None (occurrence: None)
  Receive Date: 20110222
  Receipt Date: 20110209
  Transmission Date: 20110831
  Serious: Yes (Hospitalization, Other)
  Sender: FDA-Public Use
  Company Number: PHHY2011CN10276

PATIENT
  Age: 59 Year
  Sex: Male
  Weight: 74 kg

DRUGS (3)
  1. DILTIAZEM [Interacting]
     Indication: ANGINA PECTORIS
     Dosage: 30 MG, BID
     Route: 048
  2. SIMVASTATIN [Suspect]
     Indication: HYPERCHOLESTEROLAEMIA
     Dosage: 20 MG, QD
     Route: 048
  3. SIMVASTATIN [Interacting]
     Indication: CORONARY ARTERY DISEASE

REACTIONS (6)
  - EYELID OEDEMA [None]
  - MYALGIA [None]
  - BLOOD PRESSURE DECREASED [None]
  - RHABDOMYOLYSIS [None]
  - ASTHENIA [None]
  - DRUG INTERACTION [None]
